FAERS Safety Report 8062035-X (Version None)
Quarter: 2012Q1

REPORT INFORMATION
  Report Type: 
  Country: None (occurrence: None)
  Receive Date: 20120118
  Receipt Date: 20120110
  Transmission Date: 20120608
  Serious: Yes (Disabling, Other)
  Sender: FDA-Public Use
  Company Number: 2012MA000377

PATIENT
  Sex: Female

DRUGS (1)
  1. HYDROCORTISONE 1% OINTMENT [Suspect]
     Indication: ECZEMA
     Dosage: 1 PCT; TOP
     Route: 061

REACTIONS (1)
  - THERMAL BURN [None]
